FAERS Safety Report 4292395-7 (Version None)
Quarter: 2004Q1

REPORT INFORMATION
  Report Type: 
  Country: None (occurrence: None)
  Receive Date: 20040126
  Receipt Date: 20031016
  Transmission Date: 20041129
  Serious: No
  Sender: FDA-Public Use
  Company Number: USA031050134

PATIENT
  Age: 70 Year
  Sex: Female

DRUGS (14)
  1. FORTEO [Suspect]
     Indication: OSTEOPOROSIS
     Dates: start: 20030801
  2. ADVIL [Concomitant]
  3. LASIX [Concomitant]
  4. K-DUR 10 [Concomitant]
  5. GLUCOPHAGE [Concomitant]
  6. AVAPRO [Concomitant]
  7. COVERA-HS [Concomitant]
  8. AVALIDE [Concomitant]
  9. NEXIUM [Concomitant]
  10. CALCIUM [Concomitant]
  11. FOLIC ACID [Concomitant]
  12. TRICOR [Concomitant]
  13. NPH INSULIN [Concomitant]
  14. .. [Concomitant]

REACTIONS (1)
  - BACK PAIN [None]
